FAERS Safety Report 4438724-2 (Version None)
Quarter: 2004Q3

REPORT INFORMATION
  Report Type: 
  Country: None (occurrence: None)
  Receive Date: 20040830
  Receipt Date: 20040812
  Transmission Date: 20050211
  Serious: Yes (Hospitalization)
  Sender: FDA-Public Use
  Company Number: 202913

PATIENT
  Age: 47 Year
  Sex: Female
  Weight: 102.9665 kg

DRUGS (11)
  1. AVONEX [Suspect]
     Indication: MULTIPLE SCLEROSIS
     Dosage: 30 MCG QW IM
     Route: 030
     Dates: start: 19980101, end: 20030101
  2. AVONEX [Suspect]
     Indication: MULTIPLE SCLEROSIS
     Dosage: 30 MCG QW IM
     Route: 030
     Dates: start: 20030101
  3. NEURONTIN [Concomitant]
  4. BACLOFEN [Concomitant]
  5. NORVASC [Concomitant]
  6. ACCUPRIL [Concomitant]
  7. HYDROCHLOROTHIAZIDE [Concomitant]
  8. PREVACID [Concomitant]
  9. AMBIEN [Concomitant]
  10. FEMHRT [Concomitant]
  11. ANTIHYPERTENSIVE MEDICATION (NOS) [Concomitant]

REACTIONS (8)
  - ASEPTIC NECROSIS BONE [None]
  - BLOOD CHOLESTEROL INCREASED [None]
  - CONDITION AGGRAVATED [None]
  - FATIGUE [None]
  - INTENTION TREMOR [None]
  - MUSCLE ATROPHY [None]
  - NIGHT CRAMPS [None]
  - POLLAKIURIA [None]
